FAERS Safety Report 11292979 (Version 2)
Quarter: 2015Q3

REPORT INFORMATION
  Report Type: Spontaneous
  Country: US (occurrence: US)
  Receive Date: 20150722
  Receipt Date: 20150805
  Transmission Date: 20151125
  Serious: Yes (Other)
  Sender: FDA-Public Use
  Company Number: US-UNITED THERAPEUTICS-UNT-2015-008700

PATIENT
  Age: 51 Year
  Sex: Male
  Weight: 127.89 kg

DRUGS (3)
  1. REVATIO [Concomitant]
     Active Substance: SILDENAFIL CITRATE
     Indication: PRODUCT USED FOR UNKNOWN INDICATION
  2. REMODULIN [Suspect]
     Active Substance: TREPROSTINIL
     Indication: PULMONARY HYPERTENSION
     Dosage: 0.083 ?G/KG, CONTINUING
     Route: 058
     Dates: start: 20120531
  3. TRACLEER [Concomitant]
     Active Substance: BOSENTAN
     Indication: PRODUCT USED FOR UNKNOWN INDICATION

REACTIONS (2)
  - Localised infection [Unknown]
  - Upper limb fracture [Unknown]

NARRATIVE: CASE EVENT DATE: 201507
